FAERS Safety Report 10176690 (Version 1)
Quarter: 2014Q2

REPORT INFORMATION
  Report Type: Spontaneous
  Country: US (occurrence: US)
  Receive Date: 20140516
  Receipt Date: 20140516
  Transmission Date: 20141212
  Serious: Yes (Other)
  Sender: FDA-Public Use
  Company Number: US-ABBVIE-14P-163-1235579-00

PATIENT
  Sex: Male

DRUGS (3)
  1. ANDROGEL [Suspect]
     Indication: BLOOD TESTOSTERONE DECREASED
     Dates: start: 2004, end: 201310
  2. TESTIM [Suspect]
     Indication: BLOOD TESTOSTERONE DECREASED
     Dates: end: 201310
  3. FORTESTA [Suspect]
     Indication: BLOOD TESTOSTERONE DECREASED
     Dates: end: 201310

REACTIONS (21)
  - Cerebrovascular accident [Unknown]
  - Pain [Unknown]
  - Tension [Unknown]
  - Injury [Unknown]
  - Economic problem [Unknown]
  - Injury [Unknown]
  - Emotional distress [Unknown]
  - Injury [Unknown]
  - Economic problem [Unknown]
  - Injury [Unknown]
  - Clumsiness [Unknown]
  - Hypoaesthesia [Unknown]
  - Asthenia [Unknown]
  - Unevaluable event [Unknown]
  - Speech disorder [Unknown]
  - Partner stress [Unknown]
  - Loss of employment [Unknown]
  - Loss of employment [Unknown]
  - Tension [Unknown]
  - Social problem [Unknown]
  - Emotional distress [Unknown]
